FAERS Safety Report 8842945 (Version 2)
Quarter: 2012Q4

REPORT INFORMATION
  Report Type: 
  Country: IT (occurrence: IT)
  Receive Date: 20121016
  Receipt Date: 20121123
  Transmission Date: 20130627
  Serious: Yes (Hospitalization, Other)
  Sender: FDA-Public Use
  Company Number: IT-JNJFOC-20121006911

PATIENT
  Age: 60 Year
  Sex: Female

DRUGS (6)
  1. RISPERDAL [Suspect]
     Indication: SCHIZOPHRENIA
     Route: 048
  2. RISPERDAL [Suspect]
     Indication: SCHIZOPHRENIA
     Route: 048
     Dates: start: 20121006, end: 20121006
  3. RISPERDAL [Suspect]
     Indication: SCHIZOPHRENIA
     Dosage: psychotic decompensation (diagnosed about ten years ago)
     Route: 030
  4. PARIET [Concomitant]
     Indication: PRODUCT USED FOR UNKNOWN INDICATION
     Route: 048
  5. DISSENTEN [Concomitant]
     Indication: PRODUCT USED FOR UNKNOWN INDICATION
     Route: 048
  6. UNKNOWN MEDICATION [Concomitant]
     Indication: PRODUCT USED FOR UNKNOWN INDICATION
     Route: 048

REACTIONS (10)
  - Persecutory delusion [Unknown]
  - Sopor [Recovering/Resolving]
  - Intentional overdose [Unknown]
  - Hypotension [Recovering/Resolving]
  - Bradykinesia [Recovering/Resolving]
  - Bradyphrenia [Recovering/Resolving]
  - Delirium [Unknown]
  - Psychomotor hyperactivity [Unknown]
  - Aggression [Unknown]
  - Illusion [Unknown]
